FAERS Safety Report 10009952 (Version 1)
Quarter: 2014Q1

REPORT INFORMATION
  Report Type: Spontaneous
  Country: US (occurrence: US)
  Receive Date: 20140312
  Receipt Date: 20140312
  Transmission Date: 20141002
  Serious: No
  Sender: FDA-Public Use
  Company Number: US-INCYTE CORPORATION-2013IN000420

PATIENT
  Sex: Female

DRUGS (2)
  1. JAKAFI [Suspect]
     Indication: MYELOFIBROSIS
     Dosage: 30 MG, QD (TWO 10 MG TABLETS, QAM + ONE 10 MG TABLET, QPM)
     Route: 048
     Dates: start: 20120731
  2. JAKAFI [Suspect]
     Dosage: NOT SPECIFIED (LOWER DOSE)
     Route: 048
     Dates: start: 2013

REACTIONS (1)
  - Adverse drug reaction [Unknown]
